FAERS Safety Report 8197270-3 (Version None)
Quarter: 2012Q1

REPORT INFORMATION
  Report Type: 
  Country: None (occurrence: None)
  Receive Date: 20120309
  Receipt Date: 20120306
  Transmission Date: 20120608
  Serious: Yes (Hospitalization)
  Sender: FDA-Public Use
  Company Number: JP-PFIZER INC-2011176564

PATIENT
  Sex: Male
  Weight: 3.03 kg

DRUGS (2)
  1. ZOLOFT [Suspect]
     Dosage: 25 MG, 2X/DAY
     Route: 064
     Dates: start: 20110301
  2. ALPRAZOLAM [Suspect]
     Dosage: 0.4 MG, 2X/DAY
     Route: 064
     Dates: start: 20110301

REACTIONS (4)
  - MATERNAL EXPOSURE TIMING UNSPECIFIED [None]
  - AGITATION NEONATAL [None]
  - NEUROLOGICAL SYMPTOM [None]
  - DRUG WITHDRAWAL SYNDROME NEONATAL [None]
